FAERS Safety Report 7593989-3 (Version None)
Quarter: 2011Q3

REPORT INFORMATION
  Report Type: 
  Country: None (occurrence: None)
  Receive Date: 20110706
  Receipt Date: 20110627
  Transmission Date: 20111222
  Serious: Yes (Hospitalization)
  Sender: FDA-Public Use
  Company Number: BR-US-EMD SERONO, INC.-7067944

PATIENT
  Sex: Male

DRUGS (8)
  1. NEFEDIPRESS [Concomitant]
  2. REBIF [Suspect]
     Indication: RELAPSING-REMITTING MULTIPLE SCLEROSIS
     Dates: start: 20020429
  3. ENALAPRIL MALEATE [Concomitant]
  4. FUROSEMIDE [Concomitant]
  5. HYDROCHLOROTHIAZIDE [Concomitant]
  6. FLUOXETINE HCL [Concomitant]
  7. MANTIDAN [Concomitant]
  8. SPIRONOLACTONE [Concomitant]

REACTIONS (10)
  - MICTURITION URGENCY [None]
  - FATIGUE [None]
  - DYSURIA [None]
  - BALANCE DISORDER [None]
  - URINARY RETENTION [None]
  - FALL [None]
  - RENAL DISORDER [None]
  - GAIT DISTURBANCE [None]
  - MOTOR DYSFUNCTION [None]
  - MUSCULAR WEAKNESS [None]
